FAERS Safety Report 9770385 (Version 1)
Quarter: 2013Q4

REPORT INFORMATION
  Report Type: Spontaneous
  Country: US (occurrence: US)
  Receive Date: 20131218
  Receipt Date: 20131218
  Transmission Date: 20140711
  Serious: Yes (Other)
  Sender: FDA-Public Use
  Company Number: US-TEVA-450697USA

PATIENT
  Sex: Female
  Weight: 74.91 kg

DRUGS (3)
  1. PARAGARD 380A [Suspect]
     Indication: CONTRACEPTION
     Route: 015
     Dates: start: 201212
  2. DOXYCYCLINE [Concomitant]
     Indication: PELVIC INFLAMMATORY DISEASE
  3. METRONIDAZOLE [Concomitant]
     Indication: PELVIC INFLAMMATORY DISEASE

REACTIONS (6)
  - Pelvic inflammatory disease [Not Recovered/Not Resolved]
  - Device dislocation [Not Recovered/Not Resolved]
  - Bacterial vaginosis [Recovered/Resolved]
  - Muscle spasms [Not Recovered/Not Resolved]
  - Dyspareunia [Not Recovered/Not Resolved]
  - Polycystic ovaries [Not Recovered/Not Resolved]
